FAERS Safety Report 4498330-0 (Version None)
Quarter: 2004Q4

REPORT INFORMATION
  Report Type: 
  Country: None (occurrence: None)
  Receive Date: 20041104
  Receipt Date: 20041022
  Transmission Date: 20050328
  Serious: Yes (Hospitalization)
  Sender: FDA-Public Use
  Company Number: 2004082288

PATIENT
  Age: 67 Year
  Sex: Female

DRUGS (3)
  1. VIAGRA [Suspect]
     Indication: PULMONARY HYPERTENSION
     Dosage: 100 MG (100 MG, 1 IN 1 D), ORAL
     Route: 048
  2. NIFEDIPINE [Concomitant]
  3. WARFARIN SODIUM [Concomitant]

REACTIONS (2)
  - COLITIS [None]
  - CRYPTOGENIC ORGANIZING PNEUMONIA [None]
